FAERS Safety Report 10193159 (Version 1)
Quarter: 2014Q2

REPORT INFORMATION
  Report Type: Spontaneous
  Country: US (occurrence: US)
  Receive Date: 20140524
  Receipt Date: 20140524
  Transmission Date: 20141212
  Serious: No
  Sender: FDA-Public Use
  Company Number: US-SA-2013SA115849

PATIENT
  Age: 75 Year
  Sex: Female

DRUGS (5)
  1. SOLOSTAR [Suspect]
  2. SOLOSTAR [Suspect]
  3. LANTUS SOLOSTAR [Suspect]
     Dosage: DOSE:70 UNIT(S)
     Route: 058
  4. LANTUS SOLOSTAR [Suspect]
     Dosage: DOSE:70 UNIT(S)
     Route: 058
  5. NOVOLOG [Concomitant]

REACTIONS (1)
  - Fall [Unknown]
